FAERS Safety Report 20923870 (Version 1)
Quarter: 2022Q2

REPORT INFORMATION
  Report Type: Spontaneous
  Country: US (occurrence: None)
  Receive Date: 20220606
  Receipt Date: 20220606
  Transmission Date: 20220721
  Serious: Yes (Hospitalization)
  Sender: FDA-Public Use
  Company Number: None

PATIENT
  Age: 70 Year
  Sex: Male

DRUGS (1)
  1. BREXUCABTAGENE AUTOLEUCEL [Suspect]
     Active Substance: BREXUCABTAGENE AUTOLEUCEL
     Indication: Mantle cell lymphoma
     Dosage: FREQUENCY : ONCE;?
     Route: 041
     Dates: start: 20211101, end: 20211101

REACTIONS (2)
  - Cytokine release syndrome [None]
  - Neurotoxicity [None]

NARRATIVE: CASE EVENT DATE: 20211106
